FAERS Safety Report 4396514-3 (Version None)
Quarter: 2004Q3

REPORT INFORMATION
  Report Type: 
  Country: None (occurrence: None)
  Receive Date: 20040709
  Receipt Date: 20040625
  Transmission Date: 20050211
  Serious: Yes (Hospitalization)
  Sender: FDA-Public Use
  Company Number: FR-JNJFOC-20040607222

PATIENT
  Age: 4 Month
  Sex: Male
  Weight: 7.9 kg

DRUGS (5)
  1. PROPULSID [Suspect]
     Indication: GASTROOESOPHAGEAL REFLUX DISEASE
     Dosage: 1 MG, 4 IN 1 DAY, ORAL
     Route: 048
     Dates: start: 20040301
  2. UVESTEROL (UVESTEROL) [Suspect]
     Indication: DRUG USE FOR UNKNOWN INDICATION
     Dosage: ORAL
     Route: 048
     Dates: start: 20040217
  3. INEXIUM (ESOMEPRAZOLE) [Suspect]
     Indication: GASTROOESOPHAGEAL REFLUX DISEASE
     Dosage: 1.5 MG, 1 IN 1 DAY, ORAL
     Route: 048
     Dates: start: 20040320, end: 20040417
  4. GAVISCON [Suspect]
     Indication: DRUG USE FOR UNKNOWN INDICATION
     Dosage: 3.6 ML, 1 IN 1 DAY, ORAL
     Route: 048
     Dates: start: 20040218
  5. OMEPRAZOLE [Concomitant]

REACTIONS (3)
  - DRUG INTERACTION [None]
  - NEUTROPENIA [None]
  - WHITE BLOOD CELL COUNT INCREASED [None]
